FAERS Safety Report 4714630-0 (Version None)
Quarter: 2005Q3

REPORT INFORMATION
  Report Type: 
  Country: None (occurrence: None)
  Receive Date: 20050714
  Receipt Date: 20050714
  Transmission Date: 20060218
  Serious: Yes (Hospitalization)
  Sender: FDA-Public Use
  Company Number: None

PATIENT
  Sex: Male

DRUGS (12)
  1. WARFARIN 2 MG [Suspect]
     Indication: DEEP VEIN THROMBOSIS
     Dosage: 4 MG MON, THUR ORAL
     Route: 048
  2. WARFARIN 2 MG [Suspect]
     Indication: PULMONARY EMBOLISM
     Dosage: 4 MG MON, THUR ORAL
     Route: 048
  3. WARFARIN 2 MG [Suspect]
     Indication: DEEP VEIN THROMBOSIS
     Dosage: 2 MG ALL OTHER DAYS ORAL
     Route: 048
  4. WARFARIN 2 MG [Suspect]
     Indication: PULMONARY EMBOLISM
     Dosage: 2 MG ALL OTHER DAYS ORAL
     Route: 048
  5. OMEPRAZOLE [Concomitant]
  6. FELODIPINE [Concomitant]
  7. ATENOLOL [Concomitant]
  8. APAP TAB [Concomitant]
  9. IPRATROPIUM NASAL SPRAY [Concomitant]
  10. BISACODYL [Concomitant]
  11. COMBIVENT [Concomitant]
  12. MILK OF MAGNESIA [Concomitant]

REACTIONS (2)
  - HAEMATURIA [None]
  - INTERNATIONAL NORMALISED RATIO INCREASED [None]
